FAERS Safety Report 5732510-9 (Version None)
Quarter: 2008Q2

REPORT INFORMATION
  Report Type: 
  Country: None (occurrence: None)
  Receive Date: 20080508
  Receipt Date: 20080502
  Transmission Date: 20081010
  Serious: Yes (Disabling, Other)
  Sender: FDA-Public Use
  Company Number: US-MERCK-0603USA01645

PATIENT
  Age: 63 Year
  Sex: Female

DRUGS (4)
  1. FOSAMAX [Suspect]
     Indication: OSTEOPOROSIS
     Route: 048
     Dates: end: 20050801
  2. FOSAMAX [Suspect]
     Route: 048
     Dates: start: 19980501
  3. PREDNISONE [Concomitant]
     Route: 065
     Dates: end: 20011201
  4. METHOTREXATE [Concomitant]
     Route: 065

REACTIONS (17)
  - ABDOMINAL DISCOMFORT [None]
  - ANXIETY [None]
  - APHTHOUS STOMATITIS [None]
  - BLINDNESS [None]
  - DEPRESSION [None]
  - DRUG INTOLERANCE [None]
  - ESSENTIAL HYPERTENSION [None]
  - GASTRITIS [None]
  - GLOBAL AMNESIA [None]
  - HEPATIC ENZYME INCREASED [None]
  - INTERVERTEBRAL DISC DEGENERATION [None]
  - OSTEOMYELITIS [None]
  - OSTEONECROSIS [None]
  - RHEUMATOID ARTHRITIS [None]
  - SPINAL OSTEOARTHRITIS [None]
  - SUTURE RUPTURE [None]
  - SYNOVIAL CYST [None]
